FAERS Safety Report 5821988-8 (Version None)
Quarter: 2008Q3

REPORT INFORMATION
  Report Type: 
  Country: None (occurrence: None)
  Receive Date: 20080724
  Receipt Date: 20080714
  Transmission Date: 20090109
  Serious: Yes (Hospitalization, Other)
  Sender: FDA-Public Use
  Company Number: US-MERCK-0807USA02657

PATIENT
  Age: 56 Year
  Sex: Female
  Weight: 86 kg

DRUGS (17)
  1. ZOCOR [Suspect]
     Indication: BLOOD CHOLESTEROL INCREASED
     Route: 048
     Dates: start: 20070101, end: 20070101
  2. DURAGESIC-100 [Suspect]
     Indication: PAIN
     Route: 061
     Dates: start: 20050101
  3. DURAGESIC-100 [Suspect]
     Route: 061
     Dates: start: 20040101
  4. DURAGESIC-100 [Suspect]
     Route: 061
  5. DURAGESIC-100 [Suspect]
     Route: 061
  6. DURAGESIC-100 [Suspect]
     Route: 061
     Dates: start: 19980101
  7. PERCOCET [Concomitant]
     Route: 048
     Dates: start: 19980101
  8. RELPAX [Concomitant]
     Indication: MIGRAINE
     Route: 048
  9. TAGAMET [Concomitant]
     Route: 048
     Dates: start: 19980101
  10. FENTANYL [Suspect]
     Indication: PAIN
     Route: 061
     Dates: start: 20050101, end: 20050101
  11. NEXIUM [Concomitant]
     Indication: GASTROOESOPHAGEAL REFLUX DISEASE
     Route: 048
  12. FLUDROCORTISONE ACETATE [Concomitant]
     Indication: MIGRAINE
     Route: 048
     Dates: start: 19880101
  13. ATENOLOL [Concomitant]
     Indication: ATRIAL FIBRILLATION
     Route: 048
     Dates: start: 19880101
  14. TRICOR [Concomitant]
     Indication: BLOOD CHOLESTEROL
     Route: 048
     Dates: start: 19880101
  15. TIZANIDINE HYDROCHLORIDE [Concomitant]
     Indication: MUSCLE SPASMS
     Route: 065
  16. LIDOCAINE [Concomitant]
     Indication: PAIN
     Route: 065
  17. CLONAZEPAM [Concomitant]
     Indication: ANXIETY
     Route: 065

REACTIONS (10)
  - BLADDER DISORDER [None]
  - BLADDER PAIN [None]
  - BLADDER SPASM [None]
  - CYSTITIS [None]
  - DEPRESSION [None]
  - HYPERHIDROSIS [None]
  - MUSCLE SPASMS [None]
  - NEURALGIA [None]
  - RESTLESS LEGS SYNDROME [None]
  - SUICIDE ATTEMPT [None]
